FAERS Safety Report 18663283 (Version 2)
Quarter: 2020Q4

REPORT INFORMATION
  Report Type: Spontaneous
  Country: US (occurrence: US)
  Receive Date: 20201224
  Receipt Date: 20201231
  Transmission Date: 20210114
  Serious: No
  Sender: FDA-Public Use
  Company Number: US-BAUSCH-BL-2020-035116

PATIENT
  Age: 48 Year
  Sex: Male

DRUGS (2)
  1. ADVIL [Concomitant]
     Active Substance: IBUPROFEN
     Indication: PRODUCT USED FOR UNKNOWN INDICATION
  2. JUBLIA [Suspect]
     Active Substance: EFINACONAZOLE
     Indication: ONYCHOMYCOSIS
     Dosage: STARTED ABOUT 5-6 YEARS AGO PRIOR TO DATE OF INITIAL REPORT
     Route: 061

REACTIONS (5)
  - Product delivery mechanism issue [Unknown]
  - Rash [Unknown]
  - Product packaging quantity issue [Unknown]
  - Product use issue [Unknown]
  - Product quality issue [Unknown]
